FAERS Safety Report 7705506-5 (Version None)
Quarter: 2011Q3

REPORT INFORMATION
  Report Type: 
  Country: None (occurrence: None)
  Receive Date: 20110824
  Receipt Date: 20110818
  Transmission Date: 20111222
  Serious: Yes (Hospitalization, Other)
  Sender: FDA-Public Use
  Company Number: CA-ABBOTT-11P-028-0846804-00

PATIENT
  Sex: Female
  Weight: 68.1 kg

DRUGS (3)
  1. HUMIRA [Suspect]
     Indication: CROHN'S DISEASE
     Route: 058
     Dates: start: 20110128, end: 20110311
  2. PULMICORT [Concomitant]
     Indication: ASTHMA
     Dosage: 4 PUFF DAILY, 2 PUFF 2 TIMES A DAY
     Route: 055
     Dates: start: 19910101
  3. VENTOLIN HFA [Concomitant]
     Indication: ASTHMA
     Dosage: PRN
     Route: 055
     Dates: start: 19910101

REACTIONS (6)
  - GASTROINTESTINAL ULCER [None]
  - VOMITING [None]
  - INTESTINAL RESECTION [None]
  - RENAL FAILURE [None]
  - FISTULA [None]
  - ABDOMINAL PAIN [None]
